FAERS Safety Report 7045380-6 (Version None)
Quarter: 2010Q4

REPORT INFORMATION
  Report Type: 
  Country: None (occurrence: None)
  Receive Date: 20101014
  Receipt Date: 20100827
  Transmission Date: 20110411
  Serious: No
  Sender: FDA-Public Use
  Company Number: US-ALLERGAN-1011146US

PATIENT
  Age: 50 Year
  Sex: Female

DRUGS (1)
  1. LATISSE [Suspect]
     Indication: SKIN WRINKLING
     Dosage: UNK
     Dates: start: 20100601, end: 20100701

REACTIONS (2)
  - EYE IRRITATION [None]
  - EYE PRURITUS [None]
